FAERS Safety Report 8003582-6 (Version None)
Quarter: 2011Q4

REPORT INFORMATION
  Report Type: 
  Country: None (occurrence: None)
  Receive Date: 20111222
  Receipt Date: 20111219
  Transmission Date: 20120403
  Serious: Yes (Death)
  Sender: FDA-Public Use
  Company Number: US-PFIZER INC-2011309848

PATIENT
  Age: 41 Year
  Sex: Female

DRUGS (6)
  1. COLESEVELAM HYDROCHLORIDE [Suspect]
     Dosage: UNK
     Route: 048
  2. LOPERAMIDE [Suspect]
     Dosage: UNK
     Route: 048
  3. PROPRANOLOL HCL [Suspect]
     Dosage: UNK
     Route: 048
  4. PAROXETINE [Suspect]
     Dosage: UNK
     Route: 048
  5. PSEUDOEPHEDRINE HCL [Suspect]
     Dosage: UNK
     Route: 048
  6. NAPROXEN [Suspect]
     Dosage: UNK
     Route: 048

REACTIONS (1)
  - DEATH [None]
